FAERS Safety Report 26122153 (Version 1)
Quarter: 2025Q4

REPORT INFORMATION
  Report Type: Spontaneous
  Country: MA (occurrence: MA)
  Receive Date: 20251204
  Receipt Date: 20251204
  Transmission Date: 20260117
  Serious: Yes (Death)
  Sender: PFIZER
  Company Number: MA-PFIZER INC-PV202500140899

PATIENT
  Sex: Male

DRUGS (1)
  1. TALZENNA [Suspect]
     Active Substance: TALAZOPARIB TOSYLATE
     Dosage: UNK
     Dates: start: 202507

REACTIONS (1)
  - Death [Fatal]

NARRATIVE: CASE EVENT DATE: 20251023
